FAERS Safety Report 5153988-8 (Version None)
Quarter: 2006Q4

REPORT INFORMATION
  Report Type: 
  Country: None (occurrence: None)
  Receive Date: 20061120
  Receipt Date: 20061116
  Transmission Date: 20070319
  Serious: Yes (Death)
  Sender: FDA-Public Use
  Company Number: MX-GLAXOSMITHKLINE-A0627839A

PATIENT
  Age: 89 Year
  Sex: Female

DRUGS (1)
  1. AROPAX [Suspect]
     Indication: DEPRESSION
     Dosage: 20MG PER DAY
     Route: 048
     Dates: start: 20060904, end: 20060905

REACTIONS (4)
  - DEATH [None]
  - HEADACHE [None]
  - HYPERSOMNIA [None]
  - NAUSEA [None]
